FAERS Safety Report 23679202 (Version 2)
Quarter: 2024Q2

REPORT INFORMATION
  Report Type: Report from Study
  Country: US (occurrence: US)
  Receive Date: 20240327
  Receipt Date: 20240527
  Transmission Date: 20240716
  Serious: Yes (Other)
  Sender: FDA-Public Use
  Company Number: US-002147023-NVSC2024US033265

PATIENT
  Sex: Male

DRUGS (1)
  1. KESIMPTA [Suspect]
     Active Substance: OFATUMUMAB
     Indication: Multiple sclerosis
     Dosage: 20 MG, QW FOR 3 WEEKS SKIP WEEK 4 ON WEEK 5 START MONTHLY
     Route: 058
     Dates: start: 20240206

REACTIONS (5)
  - Lower respiratory tract infection [Unknown]
  - Extradural neoplasm [Unknown]
  - Brain fog [Recovered/Resolved]
  - Headache [Recovered/Resolved]
  - Urinary tract infection bacterial [Unknown]
